FAERS Safety Report 12966755 (Version 1)
Quarter: 2016Q4

REPORT INFORMATION
  Report Type: Spontaneous
  Country: US (occurrence: US)
  Receive Date: 20161119
  Receipt Date: 20161119
  Transmission Date: 20170207
  Serious: No
  Sender: FDA-Public Use
  Company Number: None

PATIENT
  Sex: Female

DRUGS (1)
  1. FORTEO [Suspect]
     Active Substance: TERIPARATIDE
     Indication: MALAISE
     Dosage: 250MCG/ML 20MCG DAILY SUBCUTANEOUSLY
     Route: 058
     Dates: start: 20160907

REACTIONS (1)
  - Cataract [None]
